FAERS Safety Report 7726909-9 (Version None)
Quarter: 2011Q3

REPORT INFORMATION
  Report Type: 
  Country: None (occurrence: None)
  Receive Date: 20110902
  Receipt Date: 20110823
  Transmission Date: 20111222
  Serious: Yes (Other)
  Sender: FDA-Public Use
  Company Number: US-JNJFOC-20110603490

PATIENT
  Sex: Female

DRUGS (2)
  1. DOXORUBICIN HCL [Suspect]
     Indication: OVARIAN CANCER
     Route: 042
     Dates: start: 20110526
  2. DOXORUBICIN HCL [Suspect]
     Route: 042

REACTIONS (3)
  - PLATELET COUNT DECREASED [None]
  - PLANTAR ERYTHEMA [None]
  - NEUROPATHY PERIPHERAL [None]
